FAERS Safety Report 19407399 (Version 15)
Quarter: 2021Q3

REPORT INFORMATION
  Report Type: Report from Study
  Country: DK (occurrence: DK)
  Receive Date: 20210611
  Receipt Date: 20210830
  Transmission Date: 20211014
  Serious: Yes (Hospitalization, Other)
  Sender: FDA-Public Use
  Company Number: DK-ROCHE-2826384

PATIENT
  Age: 62 Year
  Sex: Female
  Weight: 59 kg

DRUGS (51)
  1. RO?7425781. [Suspect]
     Active Substance: RO-7425781
     Indication: PLASMA CELL MYELOMA
     Dosage: DATE OF MOST RECENT DOSE (0.03 MG) OF RO7425781 (GPRC5D?TCB) PRIOR TO SAE: 05/MAY/2021, AT 11:54 AM?
     Route: 042
     Dates: start: 20210505
  2. PARACETAMOL [Concomitant]
     Active Substance: ACETAMINOPHEN
     Route: 048
     Dates: start: 20210207
  3. DEXAMETHASONE. [Concomitant]
     Active Substance: DEXAMETHASONE
     Route: 042
     Dates: start: 20210526, end: 20210526
  4. RED BLOOD CELLS [Concomitant]
     Active Substance: HUMAN RED BLOOD CELL
     Indication: ANAEMIA
     Route: 042
     Dates: start: 20210605, end: 20210605
  5. CARFILZOMIB [Concomitant]
     Active Substance: CARFILZOMIB
     Dates: start: 20170905, end: 20210408
  6. ALLOPURINOL. [Concomitant]
     Active Substance: ALLOPURINOL
     Indication: HYPERURICAEMIA
     Route: 048
     Dates: start: 20210609
  7. FORMIC ACID [Concomitant]
     Active Substance: FORMIC ACID
     Dates: start: 20210421
  8. OXYGEN. [Concomitant]
     Active Substance: OXYGEN
     Dates: start: 20210526, end: 20210526
  9. OXYGEN. [Concomitant]
     Active Substance: OXYGEN
     Dates: start: 20210506, end: 20210506
  10. ACICLOVIR [Concomitant]
     Active Substance: ACYCLOVIR
     Indication: HERPES VIRUS INFECTION
     Route: 048
     Dates: start: 20190813
  11. OXYGEN. [Concomitant]
     Active Substance: OXYGEN
     Dosage: 2 L/MIN
     Dates: start: 20210506, end: 20210506
  12. OXYGEN. [Concomitant]
     Active Substance: OXYGEN
     Dates: start: 20210505, end: 20210506
  13. OXYGEN. [Concomitant]
     Active Substance: OXYGEN
     Dosage: 1 L/MIN
     Dates: start: 20210506, end: 20210507
  14. TOCILIZUMAB. [Suspect]
     Active Substance: TOCILIZUMAB
     Indication: PLASMA CELL MYELOMA
     Dosage: START DATE OF MOST RECENT DOSE OF DRUG ON 05/MAY/2021, AT 11:13 PM?END DATE OF MOST RECENT DOSE OF D
     Route: 042
     Dates: start: 20210505, end: 20210506
  15. PARACETAMOL [Concomitant]
     Active Substance: ACETAMINOPHEN
     Route: 048
     Dates: start: 20210603, end: 20210603
  16. PARACETAMOL [Concomitant]
     Active Substance: ACETAMINOPHEN
     Route: 048
     Dates: start: 20210505, end: 20210505
  17. CETIRIZINE [Concomitant]
     Active Substance: CETIRIZINE HYDROCHLORIDE
     Route: 048
     Dates: start: 20210526, end: 20210526
  18. CETIRIZINE [Concomitant]
     Active Substance: CETIRIZINE HYDROCHLORIDE
     Route: 048
     Dates: start: 20210603, end: 20210603
  19. CYCLOPHOSPHAMID [Concomitant]
     Active Substance: CYCLOPHOSPHAMIDE
     Dates: start: 20170905, end: 20210408
  20. OXYGEN. [Concomitant]
     Active Substance: OXYGEN
     Dosage: 3 L/MIN
     Dates: start: 20210505, end: 20210506
  21. PARACETAMOL [Concomitant]
     Active Substance: ACETAMINOPHEN
     Indication: PAIN
     Route: 048
     Dates: start: 20210526, end: 20210526
  22. OXYGEN. [Concomitant]
     Active Substance: OXYGEN
     Dates: start: 20210505, end: 20210506
  23. OXYGEN. [Concomitant]
     Active Substance: OXYGEN
     Dates: start: 20210604, end: 20210604
  24. OXYGEN. [Concomitant]
     Active Substance: OXYGEN
     Dosage: 2 L/MIN
     Dates: start: 20210603, end: 20210604
  25. OXYGEN. [Concomitant]
     Active Substance: OXYGEN
     Dates: start: 20210505, end: 20210506
  26. OXYGEN. [Concomitant]
     Active Substance: OXYGEN
     Dates: start: 20210505, end: 20210506
  27. CETIRIZINE [Concomitant]
     Active Substance: CETIRIZINE HYDROCHLORIDE
     Route: 048
     Dates: start: 20210526, end: 20210526
  28. CETIRIZINE [Concomitant]
     Active Substance: CETIRIZINE HYDROCHLORIDE
     Route: 048
     Dates: start: 20210526, end: 20210526
  29. OXYGEN. [Concomitant]
     Active Substance: OXYGEN
     Indication: HYPOXIA
     Dosage: 1 L/MIN
     Dates: start: 20210526, end: 20210526
  30. OXYGEN. [Concomitant]
     Active Substance: OXYGEN
     Dosage: 2 L/MIN
     Dates: start: 20210527, end: 20210527
  31. FELODIPIN [Concomitant]
     Active Substance: FELODIPINE
     Indication: BLOOD PRESSURE MEASUREMENT
     Route: 048
     Dates: start: 20171216
  32. CARFILZOMIB [Concomitant]
     Active Substance: CARFILZOMIB
     Dates: start: 20170905, end: 20210408
  33. CETIRIZINE [Concomitant]
     Active Substance: CETIRIZINE HYDROCHLORIDE
     Route: 048
     Dates: start: 20210505, end: 20210505
  34. CETIRIZINE [Concomitant]
     Active Substance: CETIRIZINE HYDROCHLORIDE
     Route: 048
  35. OXYGEN. [Concomitant]
     Active Substance: OXYGEN
     Dosage: 2 L/MIN
     Dates: start: 20210604, end: 20210604
  36. OXYGEN. [Concomitant]
     Active Substance: OXYGEN
     Dates: start: 20210603, end: 20210604
  37. CETIRIZINE [Concomitant]
     Active Substance: CETIRIZINE HYDROCHLORIDE
     Route: 048
     Dates: start: 20210623, end: 20210623
  38. BENDROFLUMETHIAZIDE;POTASSIUM [Concomitant]
     Indication: BLOOD PRESSURE MEASUREMENT
     Route: 048
     Dates: start: 20190816
  39. OXYGEN. [Concomitant]
     Active Substance: OXYGEN
     Indication: HYPOXIA
     Dates: start: 20210506, end: 20210506
  40. LIPEGFILGRASTIM [Concomitant]
     Active Substance: LIPEGFILGRASTIM
     Indication: NEUTROPENIA
     Route: 058
     Dates: start: 20210519, end: 20210519
  41. PREDNISOLONE. [Concomitant]
     Active Substance: PREDNISOLONE
     Indication: MUSCULAR WEAKNESS
     Route: 048
     Dates: start: 20210520
  42. OXYGEN. [Concomitant]
     Active Substance: OXYGEN
     Dosage: 1 L/MIN
     Dates: start: 20210526, end: 20210526
  43. OXYGEN. [Concomitant]
     Active Substance: OXYGEN
     Dates: start: 20210506, end: 20210507
  44. CETIRIZINE [Concomitant]
     Active Substance: CETIRIZINE HYDROCHLORIDE
     Route: 048
     Dates: start: 20210603, end: 20210603
  45. OXYGEN. [Concomitant]
     Active Substance: OXYGEN
     Dosage: 2 L/MIN
     Dates: start: 20210505, end: 20210506
  46. DEXAMETHASONE. [Concomitant]
     Active Substance: DEXAMETHASONE
     Route: 042
     Dates: start: 20210603, end: 20210603
  47. DEXAMETHASONE. [Concomitant]
     Active Substance: DEXAMETHASONE
     Route: 042
     Dates: start: 20210505, end: 20210505
  48. DEXAMETHASONE. [Concomitant]
     Active Substance: DEXAMETHASONE
     Route: 042
     Dates: start: 20210623, end: 20210623
  49. ZOPICLON [Concomitant]
     Active Substance: ZOPICLONE
     Indication: INSOMNIA
     Route: 048
     Dates: start: 20210303
  50. OXYGEN. [Concomitant]
     Active Substance: OXYGEN
     Dosage: 2 L/MIN
     Dates: start: 20210505, end: 20210506
  51. ACETAMINOPHEN. [Concomitant]
     Active Substance: ACETAMINOPHEN
     Route: 048
     Dates: start: 20210623, end: 20210623

REACTIONS (9)
  - Cytokine release syndrome [Recovered/Resolved]
  - Alanine aminotransferase increased [Recovered/Resolved]
  - Aspartate aminotransferase increased [Recovered/Resolved]
  - Cytokine release syndrome [Recovered/Resolved]
  - Alanine aminotransferase increased [Recovered/Resolved]
  - Alanine aminotransferase increased [Recovered/Resolved]
  - Transaminases increased [Recovering/Resolving]
  - Aspartate aminotransferase increased [Recovered/Resolved]
  - Cytokine release syndrome [Recovered/Resolved]

NARRATIVE: CASE EVENT DATE: 20210505
